FAERS Safety Report 7630062-X (Version None)
Quarter: 2011Q3

REPORT INFORMATION
  Report Type: 
  Country: None (occurrence: None)
  Receive Date: 20110722
  Receipt Date: 20110718
  Transmission Date: 20111222
  Serious: Yes (Death, Life-Threatening)
  Sender: FDA-Public Use
  Company Number: FR-ASTRAZENECA-2011SE42963

PATIENT
  Age: 88 Year
  Sex: Female

DRUGS (7)
  1. ALLOPURINOL [Suspect]
     Indication: HYPERURICAEMIA
     Route: 048
     Dates: end: 20110531
  2. LEVOTHYROXINE SODIUM [Concomitant]
     Indication: HYPOTHYROIDISM
     Route: 048
  3. LASIX [Concomitant]
     Route: 048
  4. SINTROM [Suspect]
     Route: 048
     Dates: end: 20110531
  5. DIGOXIN [Suspect]
     Indication: ATRIAL FIBRILLATION
     Route: 048
     Dates: end: 20110531
  6. ZESTORETIC [Suspect]
     Indication: HYPERTENSION
     Dosage: 20 MG/12.5 MG, DAILY
     Route: 048
     Dates: end: 20110531
  7. MIRCERA [Concomitant]
     Indication: ANAEMIA
     Route: 058

REACTIONS (3)
  - MELAENA [None]
  - INTERNATIONAL NORMALISED RATIO INCREASED [None]
  - RENAL FAILURE [None]
